FAERS Safety Report 15894145 (Version 1)
Quarter: 2019Q1

REPORT INFORMATION
  Report Type: Spontaneous
  Country: US (occurrence: US)
  Receive Date: 20190109
  Receipt Date: 20190109
  Transmission Date: 20190417
  Serious: No
  Sender: FDA-Public Use
  Company Number: None

PATIENT
  Age: 72 Year
  Sex: Female

DRUGS (1)
  1. IMATINIB  MES TAB 100MG [Suspect]
     Active Substance: IMATINIB MESYLATE
     Dates: start: 201604

REACTIONS (2)
  - Urticaria [None]
  - Fall [None]

NARRATIVE: CASE EVENT DATE: 20181208
